FAERS Safety Report 6262993-X (Version None)
Quarter: 2009Q3

REPORT INFORMATION
  Report Type: 
  Country: None (occurrence: None)
  Receive Date: 20090710
  Receipt Date: 20071218
  Transmission Date: 20100115
  Serious: Yes (Other)
  Sender: FDA-Public Use
  Company Number: US-ASTRAZENECA-2007UW05485

PATIENT
  Age: 18498 Day
  Sex: Male

DRUGS (21)
  1. SEROQUEL [Suspect]
     Indication: BIPOLAR DISORDER
     Route: 048
     Dates: start: 19980701, end: 20040401
  2. SEROQUEL [Suspect]
     Indication: INSOMNIA
     Route: 048
     Dates: start: 19980701, end: 20040401
  3. SEROQUEL [Suspect]
     Indication: MANIA
     Route: 048
     Dates: start: 19980701, end: 20040401
  4. SEROQUEL [Suspect]
     Dosage: 100 MG TO 200 MG
     Route: 048
     Dates: start: 20030729
  5. SEROQUEL [Suspect]
     Dosage: 100 MG TO 200 MG
     Route: 048
     Dates: start: 20030729
  6. SEROQUEL [Suspect]
     Dosage: 100 MG TO 200 MG
     Route: 048
     Dates: start: 20030729
  7. ZYPREXA [Suspect]
     Dates: start: 19990101, end: 20040301
  8. ZYPREXA [Suspect]
     Route: 048
     Dates: start: 19990120
  9. LISINOPRIL [Concomitant]
  10. ENALAPRIL [Concomitant]
  11. ALTACE [Concomitant]
     Dosage: 2.5 MG TO 10 MG
     Route: 048
  12. LANTUS [Concomitant]
     Dosage: 100 U/ML
  13. HUMALOG [Concomitant]
     Dosage: 100 U/ML
  14. TRAZODONE HCL [Concomitant]
     Route: 048
  15. DILTIAZEM [Concomitant]
  16. PAXIL [Concomitant]
     Route: 048
  17. DEPAKOTE [Concomitant]
     Indication: BIPOLAR DISORDER
  18. BENADRYL [Concomitant]
  19. DESIPRAMINE HCL [Concomitant]
     Dosage: 50 MG TO 250 MG
  20. LITHIUM CARBONATE [Concomitant]
  21. NORTRIPTYLINE HCL [Concomitant]

REACTIONS (4)
  - BLOOD GLUCOSE FLUCTUATION [None]
  - DIABETIC NEUROPATHY [None]
  - HYPOGLYCAEMIA [None]
  - TYPE 1 DIABETES MELLITUS [None]
